FAERS Safety Report 8793103 (Version 4)
Quarter: 2013Q2

REPORT INFORMATION
  Report Type: Spontaneous
  Country: US (occurrence: US)
  Receive Date: 20120917
  Receipt Date: 20130415
  Transmission Date: 20140414
  Serious: Yes (Hospitalization, Disabling, Other)
  Sender: FDA-Public Use
  Company Number: US-009507513-1205USA00349

PATIENT
  Sex: Female
  Weight: 66.21 kg

DRUGS (7)
  1. FOSAMAX [Suspect]
     Indication: OSTEOPOROSIS
     Dosage: 70 MG, UNK
     Route: 048
     Dates: start: 1997, end: 2008
  2. FOSAMAX [Suspect]
     Indication: OSTEOPENIA
     Dosage: 10 UNK, UNK
     Route: 048
     Dates: start: 20000215, end: 20000927
  3. FOSAMAX [Suspect]
     Dosage: 70 UNK, UNK
     Route: 048
     Dates: start: 20070810, end: 20071216
  4. ALENDRONATE SODIUM [Suspect]
     Indication: OSTEOPOROSIS
     Dosage: 70 MG, QW
     Route: 048
     Dates: start: 200806, end: 20100512
  5. ALENDRONATE SODIUM [Suspect]
     Indication: OSTEOPENIA
  6. CALCIUM (UNSPECIFIED) [Concomitant]
     Dosage: 1200 MG, UNK
  7. VITAMIN D (UNSPECIFIED) [Concomitant]
     Dosage: 1000 MG, QD

REACTIONS (27)
  - Femur fracture [Recovered/Resolved]
  - Open reduction of fracture [Recovered/Resolved]
  - Loss of consciousness [Recovered/Resolved]
  - Foot fracture [Unknown]
  - Hypertension [Not Recovered/Not Resolved]
  - Cystitis [Unknown]
  - Menopause [Unknown]
  - Dacryostenosis acquired [Unknown]
  - Blood cholesterol increased [Unknown]
  - Meniere^s disease [Unknown]
  - Hypertension [Not Recovered/Not Resolved]
  - Road traffic accident [Unknown]
  - Hypoaesthesia [Unknown]
  - Limb injury [Recovered/Resolved]
  - Sciatica [Unknown]
  - Conjunctival haemorrhage [Unknown]
  - Bladder diverticulum [Unknown]
  - Dysuria [Unknown]
  - Pubis fracture [Recovered/Resolved]
  - Bursitis [Unknown]
  - Rhinitis allergic [Not Recovered/Not Resolved]
  - Fall [Unknown]
  - Osteoarthritis [Not Recovered/Not Resolved]
  - Fall [Unknown]
  - Rib fracture [Unknown]
  - Constipation [Unknown]
  - Muscle spasms [Unknown]
